FAERS Safety Report 6191074-9 (Version None)
Quarter: 2009Q2

REPORT INFORMATION
  Report Type: 
  Country: None (occurrence: None)
  Receive Date: 20090513
  Receipt Date: 20090513
  Transmission Date: 20091009
  Serious: Yes (Life-Threatening, Hospitalization, Other)
  Sender: FDA-Public Use
  Company Number: None

PATIENT
  Age: 50 Year
  Sex: Male
  Weight: 95.2554 kg

DRUGS (2)
  1. FENTANYL [Suspect]
     Indication: INTERVERTEBRAL DISC OPERATION
     Dosage: 100 MG PATCH 1 EVERY 3 DAYS WK
     Dates: start: 20010101, end: 20030101
  2. FENTANYL [Suspect]
     Indication: PAIN
     Dosage: 100 MG PATCH 1 EVERY 3 DAYS WK
     Dates: start: 20010101, end: 20030101

REACTIONS (3)
  - DRUG DELIVERY SYSTEM MALFUNCTION [None]
  - OVERDOSE [None]
  - PRODUCT QUALITY ISSUE [None]
